FAERS Safety Report 9292512 (Version 1)
Quarter: 2013Q2

REPORT INFORMATION
  Report Type: Spontaneous
  Country: GB (occurrence: GB)
  Receive Date: 20130516
  Receipt Date: 20130516
  Transmission Date: 20140414
  Serious: Yes (Death, Other)
  Sender: FDA-Public Use
  Company Number: GB-PFIZER INC-2013147602

PATIENT
  Age: 76 Year
  Sex: Male

DRUGS (1)
  1. VIAGRA [Suspect]
     Dosage: 50 MG, UNK

REACTIONS (1)
  - Death [Fatal]
